FAERS Safety Report 20678564 (Version 7)
Quarter: 2022Q2

REPORT INFORMATION
  Report Type: Spontaneous
  Country: CZ (occurrence: CZ)
  Receive Date: 20220406
  Receipt Date: 20220608
  Transmission Date: 20220721
  Serious: Yes (Life-Threatening, Hospitalization, Other)
  Sender: FDA-Public Use
  Company Number: CZ-MYLANLABS-2022M1024797

PATIENT
  Age: 31 Year
  Sex: Female

DRUGS (10)
  1. LAMOTRIGINE [Interacting]
     Active Substance: LAMOTRIGINE
     Indication: Product used for unknown indication
     Dosage: UNK
     Dates: start: 2021
  2. LAMOTRIGINE [Interacting]
     Active Substance: LAMOTRIGINE
     Dosage: UNK
  3. VENLAFAXINE [Interacting]
     Active Substance: VENLAFAXINE HYDROCHLORIDE
     Indication: Product used for unknown indication
     Dosage: UNK
     Dates: start: 2021
  4. VENLAFAXINE [Interacting]
     Active Substance: VENLAFAXINE HYDROCHLORIDE
     Dosage: UNK
  5. FLUOXETINE [Interacting]
     Active Substance: FLUOXETINE HYDROCHLORIDE
     Indication: Anxiety
     Dosage: 20 MILLIGRAM, QD (20 MG, 1 D)
     Dates: start: 20210410
  6. WARFARIN [Interacting]
     Active Substance: WARFARIN
     Indication: Pulmonary embolism
     Dosage: 10 MILLIGRAM, QD (10 MG, 1D )
     Dates: start: 20210408
  7. WARFARIN [Interacting]
     Active Substance: WARFARIN
     Dosage: 10 MILLIGRAM, QD (10 MG, 1D)
     Dates: start: 20210410
  8. WARFARIN [Interacting]
     Active Substance: WARFARIN
     Dosage: 5 MILLIGRAM, QD (5 MG, 1D THE NEXT DAY  )
     Dates: start: 20210417
  9. PANTOPRAZOLE [Concomitant]
     Active Substance: PANTOPRAZOLE
     Indication: Product used for unknown indication
     Dosage: 40 MILLIGRAM, QD (40 MG, 1D)
     Dates: start: 20210410
  10. PANTOPRAZOLE [Concomitant]
     Active Substance: PANTOPRAZOLE
     Dosage: 40 MILLIGRAM, QD (40 MG, 1D)
     Dates: start: 20210408

REACTIONS (7)
  - Suicide attempt [Unknown]
  - Pulmonary embolism [Unknown]
  - Intentional overdose [Unknown]
  - Anxiety [Unknown]
  - Drug interaction [Unknown]
  - Anorexia nervosa [Unknown]
  - International normalised ratio increased [Unknown]

NARRATIVE: CASE EVENT DATE: 20210401
